FAERS Safety Report 26149805 (Version 1)
Quarter: 2025Q4

REPORT INFORMATION
  Report Type: Spontaneous
  Country: US (occurrence: US)
  Receive Date: 20251212
  Receipt Date: 20251212
  Transmission Date: 20260117
  Serious: Yes (Hospitalization)
  Sender: BAYER HEALTHCARE LLC
  Company Number: US-MLMSERVICE-20251201-PI731972-00180-1

PATIENT
  Age: 31 Year
  Sex: Male

DRUGS (2)
  1. NAPROXEN SODIUM [Suspect]
     Active Substance: NAPROXEN SODIUM
     Indication: Analgesic intervention supportive therapy
     Dosage: UNK UNK, BID
  2. INDOMETHACIN [Suspect]
     Active Substance: INDOMETHACIN
     Indication: Analgesic intervention supportive therapy
     Dosage: UNK UNK, BID

REACTIONS (4)
  - Glomerulonephritis membranous [Unknown]
  - Renal vein thrombosis [Recovering/Resolving]
  - Venous thrombosis [Recovering/Resolving]
  - Spermatic vein thrombosis [Unknown]
